FAERS Safety Report 4855153-8 (Version None)
Quarter: 2005Q4

REPORT INFORMATION
  Report Type: 
  Country: None (occurrence: None)
  Receive Date: 20051214
  Receipt Date: 20051128
  Transmission Date: 20060501
  Serious: Yes (Hospitalization)
  Sender: FDA-Public Use
  Company Number: 2005-240

PATIENT
  Age: 75 Year
  Sex: Female

DRUGS (18)
  1. FLUCONAZOLE [Suspect]
     Indication: VAGINAL CANDIDIASIS
     Dosage: 150 MG/DAY ORALLY
     Route: 048
     Dates: start: 20051021
  2. WARFARIN [Suspect]
     Indication: PULMONARY EMBOLISM
     Dosage: 3 MG/ DAY ORALLY
     Route: 048
  3. ISOSORBIDE MONONITRATE 20 MG [Concomitant]
  4. LANSOPRAZOLE [Concomitant]
  5. DILTIAZEM 200MG [Concomitant]
  6. SIMVASTATIN [Concomitant]
  7. FUROSEMIDE 10 MG [Concomitant]
  8. ALENDRONIC ACID 70 MG [Concomitant]
  9. GLYCERYL TRINITRATE [Concomitant]
  10. BECLOMETHASONE 100MCG [Concomitant]
  11. SALMETEROL 25MCG [Concomitant]
  12. SALBUTAMOL [Concomitant]
  13. PREDNISOLONE [Concomitant]
  14. MICONAZOLE [Concomitant]
  15. SODIUM ACID PHOSPHATE +SODIUM PHOSPHATE ANHYDROUS [Concomitant]
  16. POLOXAMER +DANTHRON [Concomitant]
  17. PERU BALSAM + BISMUTH+ ZINC [Concomitant]
  18. CEFALEXIN 250MG ORALLY [Concomitant]

REACTIONS (8)
  - DIZZINESS [None]
  - DYSPNOEA [None]
  - EXERCISE TOLERANCE DECREASED [None]
  - INTERNATIONAL NORMALISED RATIO INCREASED [None]
  - NAUSEA [None]
  - RECTAL HAEMORRHAGE [None]
  - SUPRAPUBIC PAIN [None]
  - VAGINAL HAEMORRHAGE [None]
